FAERS Safety Report 17868383 (Version 1)
Quarter: 2020Q2

REPORT INFORMATION
  Report Type: Spontaneous
  Country: DE (occurrence: DE)
  Receive Date: 20200606
  Receipt Date: 20200606
  Transmission Date: 20200714
  Serious: Yes (Death, Hospitalization, Other)
  Sender: FDA-Public Use
  Company Number: DE-AUROBINDO-AUR-APL-2020-026939

PATIENT
  Age: 49 Year
  Sex: Female

DRUGS (2)
  1. PRASUGREL FILM COATED TABLETS [Suspect]
     Active Substance: PRASUGREL
     Indication: THROMBOSIS PROPHYLAXIS
     Dosage: 30 MILLIGRAM, ONCE A DAY
     Route: 048
  2. PRASUGREL FILM COATED TABLETS [Suspect]
     Active Substance: PRASUGREL
     Dosage: 10 MILLIGRAM, ONCE A DAY
     Route: 048

REACTIONS (1)
  - Cerebral infarction [Fatal]
